FAERS Safety Report 8018584-3 (Version None)
Quarter: 2011Q4

REPORT INFORMATION
  Report Type: 
  Country: None (occurrence: None)
  Receive Date: 20111228
  Receipt Date: 20111220
  Transmission Date: 20120403
  Serious: Yes (Life-Threatening, Disabling, Other)
  Sender: FDA-Public Use
  Company Number: 2010JP005873

PATIENT
  Age: 22 Year
  Sex: Male
  Weight: 65 kg

DRUGS (6)
  1. METHOTREXATE [Concomitant]
  2. PROGRAF [Suspect]
     Indication: PROPHYLAXIS AGAINST GRAFT VERSUS HOST DISEASE
     Dosage: 1.8 MG, UNKNOWN/D, IV DRIP
     Route: 041
     Dates: start: 20080909, end: 20081029
  3. PROGRAF [Suspect]
     Indication: PROPHYLAXIS AGAINST GRAFT VERSUS HOST DISEASE
     Dosage: 0.5;0.6 MG, BID, ORAL
     Route: 048
     Dates: start: 20081029
  4. PREDNISOLONE [Suspect]
     Dosage: 30; 35 MG, BID
     Dates: start: 20081027, end: 20090329
  5. PREDNISOLONE [Suspect]
     Dosage: 30; 35 MG, BID
     Dates: start: 20081016, end: 20081026
  6. GLUCOCORTICOIDS [Concomitant]

REACTIONS (7)
  - THROMBOTIC MICROANGIOPATHY [None]
  - PANCYTOPENIA [None]
  - PARESIS [None]
  - VIITH NERVE PARALYSIS [None]
  - DRUG INEFFECTIVE [None]
  - CEREBRAL TOXOPLASMOSIS [None]
  - ACUTE GRAFT VERSUS HOST DISEASE IN SKIN [None]
